FAERS Safety Report 5663407-0 (Version None)
Quarter: 2008Q1

REPORT INFORMATION
  Report Type: 
  Country: None (occurrence: None)
  Receive Date: 20080310
  Receipt Date: 20080229
  Transmission Date: 20080703
  Serious: Yes (Hospitalization, Other)
  Sender: FDA-Public Use
  Company Number: 2008AP000551

PATIENT
  Age: 2 Year
  Sex: Female

DRUGS (3)
  1. VALPROIC ACID SYRUP [Suspect]
     Indication: EPILEPSY
     Dosage: 675 MG; QD; PO
     Route: 048
  2. PHENOBARBITAL TAB [Concomitant]
  3. ZONISAMIDE [Concomitant]

REACTIONS (10)
  - ACUTE MYELOID LEUKAEMIA [None]
  - ANAEMIA [None]
  - ANOREXIA [None]
  - BLOOD LACTATE DEHYDROGENASE INCREASED [None]
  - LETHARGY [None]
  - PETIT MAL EPILEPSY [None]
  - PYREXIA [None]
  - SKIN DISCOLOURATION [None]
  - SPLENOMEGALY [None]
  - THROMBOCYTOPENIA [None]
